FAERS Safety Report 10184572 (Version 1)
Quarter: 2014Q2

REPORT INFORMATION
  Report Type: Spontaneous
  Country: US (occurrence: US)
  Receive Date: 20140521
  Receipt Date: 20140521
  Transmission Date: 20141212
  Serious: Yes (Hospitalization)
  Sender: FDA-Public Use
  Company Number: US-ROCHE-1404100

PATIENT
  Age: 57 Year
  Sex: Female

DRUGS (3)
  1. PEGASYS [Suspect]
     Indication: MULTIPLE SCLEROSIS
     Route: 058
  2. RIBAVIRIN [Concomitant]
     Indication: HEPATITIS C
     Route: 065
  3. SOVALDI [Concomitant]
     Indication: HEPATITIS C
     Route: 065

REACTIONS (2)
  - Diverticulum intestinal [Unknown]
  - Injection site reaction [Unknown]
